FAERS Safety Report 4683532-0 (Version None)
Quarter: 2005Q2

REPORT INFORMATION
  Report Type: 
  Country: None (occurrence: None)
  Receive Date: 20050602
  Receipt Date: 20050321
  Transmission Date: 20051028
  Serious: No
  Sender: FDA-Public Use
  Company Number: 200510547BWH

PATIENT
  Age: 75 Year
  Sex: Male

DRUGS (2)
  1. LEVITRA [Suspect]
     Dosage: 10 MG, PRN, ORAL
     Route: 048
  2. LEVITRA [Suspect]
     Dosage: 5 MG, HS, ORAL
     Route: 048
     Dates: start: 20050320

REACTIONS (4)
  - BLOOD PRESSURE DECREASED [None]
  - DRUG INEFFECTIVE [None]
  - HEART RATE DECREASED [None]
  - MALAISE [None]
